FAERS Safety Report 15292375 (Version 2)
Quarter: 2024Q4

REPORT INFORMATION
  Report Type: Spontaneous
  Country: NL (occurrence: NL)
  Receive Date: 20180818
  Receipt Date: 20241010
  Transmission Date: 20250115
  Serious: Yes (Other)
  Sender: AUROBINDO
  Company Number: NL-AUROBINDO-AUR-APL-2018-042477

PATIENT
  Age: 26 Year
  Sex: Male
  Weight: 79 kg

DRUGS (7)
  1. ESCITALOPRAM [Interacting]
     Active Substance: ESCITALOPRAM OXALATE
     Indication: Depression
     Dosage: 10 MILLIGRAM, 10 MG, QD (ONE TABLET ONCE A DAY)
     Route: 065
     Dates: start: 20180713
  2. SUMATRIPTAN SUCCINATE [Interacting]
     Active Substance: SUMATRIPTAN SUCCINATE
     Indication: Migraine
     Dosage: 50 MILLIGRAM, UNK (WITH MIGRAINE 1 TABLET, REPEAT TWICE A DAY IF NECESSARY, WAIT MORE THAN 2 HOURS)
     Route: 065
     Dates: start: 20160330
  3. LOPERAMIDE [Concomitant]
     Active Substance: LOPERAMIDE
     Indication: Product used for unknown indication
     Dosage: 2 MILLIGRAM,(IF NECESSARY, SIX CAPSULES PER DAY)
     Route: 065
     Dates: start: 20140909
  4. IMODIUM [Concomitant]
     Active Substance: LOPERAMIDE HYDROCHLORIDE
     Indication: Product used for unknown indication
     Dosage: 2 MILLIGRAM, QD (1DD1)
     Route: 065
  5. CHOLESTYRAMINE [Concomitant]
     Active Substance: CHOLESTYRAMINE
     Indication: Product used for unknown indication
     Dosage: 4 GRAM, 2DD1, Q.12H (ONE SACHET TWICE A DAY)
     Route: 065
     Dates: start: 20170125
  6. OXAZEPAM [Concomitant]
     Active Substance: OXAZEPAM
     Indication: Product used for unknown indication
     Dosage: 10 MG, PRN(ONE TABLET PER DAY IF NECESSARY)
     Route: 065
     Dates: start: 20180713
  7. PSYLLIUMVEZELS [Concomitant]
     Indication: Product used for unknown indication
     Dosage: 2 KEER PER DAG ZO NODIG 1 ZAKJE
     Dates: start: 20140711

REACTIONS (8)
  - Serotonin syndrome [Recovered/Resolved]
  - Musculoskeletal stiffness [Recovered/Resolved]
  - Muscle tightness [Recovered/Resolved]
  - Dyskinesia [Recovered/Resolved]
  - Anxiety [Recovered/Resolved]
  - Hyperhidrosis [Recovered/Resolved]
  - Myalgia [Recovered/Resolved]
  - Drug interaction [Recovered/Resolved]

NARRATIVE: CASE EVENT DATE: 20180719
